FAERS Safety Report 9109699 (Version 1)
Quarter: 2013Q1

REPORT INFORMATION
  Report Type: Spontaneous
  Country: TR (occurrence: TR)
  Receive Date: 20130222
  Receipt Date: 20130222
  Transmission Date: 20140127
  Serious: Yes (Other)
  Sender: FDA-Public Use
  Company Number: TR-PFIZER INC-2013052426

PATIENT
  Age: 65 Year
  Sex: 0
  Weight: 65 kg

DRUGS (4)
  1. CHAMPIX [Suspect]
     Dosage: UNK
     Route: 048
     Dates: start: 20130125
  2. BELOC [Concomitant]
     Dosage: UNK
  3. LERCADIP [Concomitant]
     Dosage: UNK
  4. OLMESARTAN MEDOXOMIL [Concomitant]
     Dosage: UNK

REACTIONS (3)
  - Asphyxia [Recovered/Resolved]
  - Urticaria [Recovered/Resolved]
  - Dysphonia [Recovered/Resolved]
